FAERS Safety Report 5119988-9 (Version None)
Quarter: 2006Q3

REPORT INFORMATION
  Report Type: 
  Country: None (occurrence: None)
  Receive Date: 20060929
  Receipt Date: 20060919
  Transmission Date: 20061208
  Serious: Yes (Other)
  Sender: FDA-Public Use
  Company Number: 2006112577

PATIENT
  Age: 70 Year

DRUGS (2)
  1. SULPERAZON (SULBACTAM, CEFOPERAZONE) [Suspect]
     Indication: DRUG USE FOR UNKNOWN INDICATION
     Dosage: INTRAVENOUS
     Route: 042
     Dates: start: 20060915, end: 20060915
  2. BFLUID (MIXED AMINO ACID/CARBOHYDRATE/LECTROLYTE/VITAMIN COMBINED (ALL [Concomitant]

REACTIONS (1)
  - HYPOTENSION [None]
